FAERS Safety Report 8997881 (Version 2)
Quarter: 2013Q1

REPORT INFORMATION
  Report Type: Spontaneous
  Country: BR (occurrence: BR)
  Receive Date: 20130104
  Receipt Date: 20130107
  Transmission Date: 20140127
  Serious: Yes (Death, Hospitalization)
  Sender: FDA-Public Use
  Company Number: PHHY2013BR001110

PATIENT
  Age: 75 Year
  Sex: Female
  Weight: 60 kg

DRUGS (4)
  1. EXELON PATCH [Suspect]
     Indication: DEMENTIA ALZHEIMER^S TYPE
     Dosage: 9MG/5CM2, ONE PATCH EVERY 24 HOURS
     Route: 062
     Dates: start: 20121223, end: 20121225
  2. ANTIBIOTICS [Concomitant]
     Indication: URINARY TRACT INFECTION
  3. FUROSEMIDE [Concomitant]
     Indication: SWELLING
     Dosage: 2 DF,IN THE MORNING
     Route: 048
     Dates: start: 201210
  4. CITALOPRAM [Concomitant]
     Indication: NERVOUSNESS
     Dosage: 1 DF, DAILY
     Route: 048
     Dates: start: 20121124

REACTIONS (8)
  - Varices oesophageal [Fatal]
  - Mouth haemorrhage [Fatal]
  - Varicose vein ruptured [Fatal]
  - Genital haemorrhage [Fatal]
  - Bronchopneumonia [Fatal]
  - Septic shock [Fatal]
  - Renal failure chronic [Fatal]
  - Vomiting [Recovered/Resolved]
